FAERS Safety Report 5497391-X (Version None)
Quarter: 2007Q4

REPORT INFORMATION
  Report Type: 
  Country: None (occurrence: None)
  Receive Date: 20071025
  Receipt Date: 20070119
  Transmission Date: 20080405
  Serious: No
  Sender: FDA-Public Use
  Company Number: US-BRISTOL-MYERS SQUIBB COMPANY-13649199

PATIENT
  Age: 66 Year
  Sex: Female
  Weight: 66 kg

DRUGS (3)
  1. GLUCOPHAGE XR [Suspect]
     Indication: DIABETES MELLITUS
     Dates: start: 19980101
  2. BENICAR [Concomitant]
  3. GLUCOTROL [Concomitant]

REACTIONS (1)
  - BLOOD GLUCOSE INCREASED [None]
